FAERS Safety Report 18520505 (Version 2)
Quarter: 2020Q4

REPORT INFORMATION
  Report Type: Spontaneous
  Country: RS (occurrence: RS)
  Receive Date: 20201118
  Receipt Date: 20201126
  Transmission Date: 20210114
  Serious: Yes (Hospitalization, Other)
  Sender: FDA-Public Use
  Company Number: RS-ROCHE-2711390

PATIENT
  Age: 78 Year
  Sex: Male
  Weight: 91 kg

DRUGS (19)
  1. TAMSOL [Concomitant]
     Dosage: 1 X 1
  2. TRITACE [Concomitant]
     Active Substance: RAMIPRIL
     Dosage: 1 X 1
  3. ESBRIET [Suspect]
     Active Substance: PIRFENIDONE
     Indication: INTERSTITIAL LUNG DISEASE
     Dosage: WEEKS 1: 3 X 1; WEEKS 2: 3 X 2; WEEKS 3 AND FURTHER: 3 X 3
     Route: 048
     Dates: start: 20180622
  4. CARVILEX [Concomitant]
     Dosage: 2X1/2
  5. LASIX [Concomitant]
     Active Substance: FUROSEMIDE
     Dosage: 1 X 1/2
  6. SPIRONOLACTONE. [Concomitant]
     Active Substance: SPIRONOLACTONE
     Dosage: 1 X 1/2
  7. VIVACE [DELAPRIL HYDROCHLORIDE;MANIDIPINE HYDROCHLORIDE] [Concomitant]
     Active Substance: DELAPRIL HYDROCHLORIDE\MANIDIPINE HYDROCHLORIDE
     Dosage: 1 X 1
  8. CLOPIDIX [Concomitant]
     Active Substance: CLOPIDOGREL BISULFATE
     Dosage: 1X1
  9. ASPIRIN. [Concomitant]
     Active Substance: ASPIRIN
     Dosage: 1 X 1
  10. PROPAFEN [Concomitant]
     Dosage: 2 X 1
  11. AMLODIPINE [Concomitant]
     Active Substance: AMLODIPINE BESYLATE
     Dosage: 1 X 1/2
  12. CONCOR [Concomitant]
     Active Substance: BISOPROLOL FUMARATE
     Dosage: 1 X 1
  13. LASIX [Concomitant]
     Active Substance: FUROSEMIDE
     Dosage: 1 X 1
  14. AMLODIPINE [Concomitant]
     Active Substance: AMLODIPINE BESYLATE
     Dosage: 1 X 1
  15. ASPIRIN PROTEC [Concomitant]
     Active Substance: ASPIRIN
     Dosage: 1 X 1
  16. PANRAZOL [Concomitant]
     Active Substance: PANTOPRAZOLE SODIUM
     Dosage: 2 X 1
  17. SPIRONOLACTONE. [Concomitant]
     Active Substance: SPIRONOLACTONE
     Dosage: 1 X 1/4
  18. PLAVIX [Concomitant]
     Active Substance: CLOPIDOGREL BISULFATE
     Dosage: 1 X 1
  19. INDAPAMIDE. [Concomitant]
     Active Substance: INDAPAMIDE
     Dosage: 1 X1

REACTIONS (4)
  - Respiratory tract infection bacterial [Unknown]
  - Acute myocardial infarction [Recovering/Resolving]
  - Cough [Unknown]
  - Dyspnoea exertional [Unknown]

NARRATIVE: CASE EVENT DATE: 20180804
